FAERS Safety Report 18059444 (Version 2)
Quarter: 2020Q4

REPORT INFORMATION
  Report Type: Spontaneous
  Country: US (occurrence: US)
  Receive Date: 20200723
  Receipt Date: 20201012
  Transmission Date: 20210113
  Serious: No
  Sender: FDA-Public Use
  Company Number: US-PFIZER INC-2020277228

PATIENT
  Age: 59 Year
  Sex: Male
  Weight: 149.69 kg

DRUGS (3)
  1. PREGABALIN. [Suspect]
     Active Substance: PREGABALIN
     Indication: NEUROPATHY PERIPHERAL
  2. PREGABALIN. [Suspect]
     Active Substance: PREGABALIN
     Indication: NERVE INJURY
     Dosage: 200 MG, THRICE A DAY
     Route: 048
     Dates: start: 202001, end: 202001
  3. PREGABALIN. [Suspect]
     Active Substance: PREGABALIN
     Indication: BURNING SENSATION

REACTIONS (1)
  - Drug ineffective [Unknown]

NARRATIVE: CASE EVENT DATE: 202001
